FAERS Safety Report 9110307 (Version 2)
Quarter: 2013Q1

REPORT INFORMATION
  Report Type: Spontaneous
  Country: GE (occurrence: GE)
  Receive Date: 20130222
  Receipt Date: 20130226
  Transmission Date: 20140127
  Serious: Yes (Other)
  Sender: FDA-Public Use
  Company Number: GE-ROCHE-1186839

PATIENT
  Age: 11 Year
  Sex: Female
  Weight: 37 kg

DRUGS (6)
  1. ACTEMRA [Suspect]
     Indication: JUVENILE IDIOPATHIC ARTHRITIS
     Route: 041
     Dates: start: 20121123, end: 20130118
  2. ACTEMRA [Suspect]
     Dosage: DOSE : 8MG/KG
     Route: 042
     Dates: start: 20121204
  3. ACTEMRA [Suspect]
     Route: 042
     Dates: start: 20130104
  4. ACTEMRA [Suspect]
     Route: 042
     Dates: start: 20130102
  5. METHOTREXATE [Concomitant]
     Route: 048
     Dates: start: 2010
  6. MELOXICAM [Concomitant]
     Route: 048
     Dates: start: 2008

REACTIONS (1)
  - Lipids abnormal [Not Recovered/Not Resolved]
